FAERS Safety Report 23448984 (Version 1)
Quarter: 2024Q1

REPORT INFORMATION
  Report Type: Spontaneous
  Country: DE (occurrence: DE)
  Receive Date: 20240128
  Receipt Date: 20240128
  Transmission Date: 20240410
  Serious: Yes (Hospitalization, Other)
  Sender: FDA-Public Use
  Company Number: DE-JAZZ PHARMACEUTICALS-2023-DE-021363

PATIENT

DRUGS (1)
  1. VYXEOS [Suspect]
     Active Substance: CYTARABINE\DAUNORUBICIN
     Indication: Acute myeloid leukaemia
     Dosage: 121 MILLIGRAM, TID
     Route: 042
     Dates: start: 20230927, end: 20231201

REACTIONS (2)
  - Acute myeloid leukaemia [Not Recovered/Not Resolved]
  - Therapy non-responder [Unknown]
